FAERS Safety Report 6699897-4 (Version None)
Quarter: 2010Q2

REPORT INFORMATION
  Report Type: 
  Country: None (occurrence: None)
  Receive Date: 20100427
  Receipt Date: 20100427
  Transmission Date: 20101027
  Serious: No
  Sender: FDA-Public Use
  Company Number: None

PATIENT
  Sex: Male
  Weight: 107.8 kg

DRUGS (5)
  1. CYCLOPHOSPHAMIDE [Suspect]
     Dosage: 4100 MG
     Dates: end: 20100328
  2. DOXORUBICIN HCL [Suspect]
     Dosage: 100 MG
     Dates: end: 20100328
  3. METHOTREXATE [Suspect]
     Dosage: 245 MG
     Dates: end: 20100327
  4. RITUXIMAB (MOAB C2B8 ANTI CD20, CHIMERIC) [Suspect]
     Dosage: 770 MG
     Dates: end: 20100326
  5. VINCRISTINE SULFATE [Suspect]
     Dosage: 2 MG
     Dates: end: 20100328

REACTIONS (1)
  - PULMONARY EMBOLISM [None]
